FAERS Safety Report 13726572 (Version 1)
Quarter: 2017Q3

REPORT INFORMATION
  Report Type: Spontaneous
  Country: US (occurrence: US)
  Receive Date: 20170707
  Receipt Date: 20170707
  Transmission Date: 20171127
  Serious: Yes (Other)
  Sender: FDA-Public Use
  Company Number: US-BAYER-2017-128123

PATIENT
  Sex: Female

DRUGS (1)
  1. MIRENA [Suspect]
     Active Substance: LEVONORGESTREL
     Dosage: 20 MCG/24HR, CONT
     Route: 015

REACTIONS (9)
  - Panic attack [None]
  - Abortion spontaneous [None]
  - Device use issue [None]
  - Pregnancy with contraceptive device [None]
  - Feeling abnormal [None]
  - Device difficult to use [None]
  - Drug ineffective [None]
  - Device dislocation [None]
  - Abdominal pain lower [None]
